FAERS Safety Report 5213429-9 (Version None)
Quarter: 2007Q1

REPORT INFORMATION
  Report Type: 
  Country: None (occurrence: None)
  Receive Date: 20070119
  Receipt Date: 20070115
  Transmission Date: 20070707
  Serious: Yes (Hospitalization)
  Sender: FDA-Public Use
  Company Number: JP-MERCK-0604USA00885

PATIENT
  Age: 68 Year
  Sex: Female

DRUGS (7)
  1. FOSAMAX [Suspect]
     Indication: OSTEOPOROSIS
     Route: 048
     Dates: start: 20050128, end: 20060414
  2. MARZULENE-S [Concomitant]
     Route: 048
     Dates: end: 20060101
  3. CYANOCOBALAMIN [Concomitant]
     Route: 065
     Dates: end: 20060101
  4. PRIMPERAN [Concomitant]
     Route: 065
     Dates: end: 20060101
  5. CALONAL [Concomitant]
     Route: 065
     Dates: end: 20060101
  6. MINALFEN [Concomitant]
     Route: 048
     Dates: end: 20060101
  7. AMLODIPINE BESYLATE [Concomitant]
     Route: 048
     Dates: end: 20060101

REACTIONS (4)
  - DRY MOUTH [None]
  - EXCORIATION [None]
  - PYREXIA [None]
  - RASH [None]
